FAERS Safety Report 7680141-6 (Version None)
Quarter: 2011Q3

REPORT INFORMATION
  Report Type: 
  Country: None (occurrence: None)
  Receive Date: 20110812
  Receipt Date: 20110802
  Transmission Date: 20111222
  Serious: Yes (Hospitalization)
  Sender: FDA-Public Use
  Company Number: JP-UCBSA-037677

PATIENT
  Sex: Female

DRUGS (9)
  1. CERTOLIZUMAB PEGOL [Suspect]
     Dosage: RA006: FROM WEEK 6 ONWARDS
     Route: 058
     Dates: end: 20100216
  2. CERTOLIZUMAB PEGOL [Suspect]
     Indication: RHEUMATOID ARTHRITIS
     Dosage: RA0006: WEEK 0, 2 AND 4
     Route: 058
     Dates: start: 20090818
  3. INDOMETHACIN [Concomitant]
     Dosage: ADEQUATE DOSE
     Dates: start: 20090728
  4. FLAVIN ADENINE DINUCLEOTIDE SODIUM [Concomitant]
     Dosage: DAILY DOSE:15MG
     Dates: start: 20110607
  5. CERTOLIZUMAB PEGOL [Suspect]
     Route: 058
     Dates: start: 20100302
  6. REBAMIPIDE [Concomitant]
     Dosage: DAILY DOSE: 300MG
     Dates: start: 20090410
  7. LOXONIN [Suspect]
     Indication: RHEUMATOID ARTHRITIS
     Route: 048
     Dates: start: 20090714
  8. KETOPROFEN [Concomitant]
     Dosage: ADEQUATE DOSE
     Dates: start: 20090410
  9. ALFACALCIDOL [Concomitant]
     Dosage: DAILY DOSE:0.5MCG
     Dates: start: 20100501

REACTIONS (1)
  - GASTRIC PERFORATION [None]
